FAERS Safety Report 5418189-4 (Version None)
Quarter: 2007Q3

REPORT INFORMATION
  Report Type: 
  Country: None (occurrence: None)
  Receive Date: 20070817
  Receipt Date: 20070809
  Transmission Date: 20080115
  Serious: Yes (Hospitalization, Other)
  Sender: FDA-Public Use
  Company Number: US-ELI_LILLY_AND_COMPANY-US200708002097

PATIENT
  Sex: Female

DRUGS (6)
  1. HUMULIN 70/30 [Suspect]
     Indication: DIABETES MELLITUS
     Dosage: 30 U, EACH MORNING
     Dates: start: 20070101
  2. HUMULIN 70/30 [Suspect]
     Dosage: 16 U, EACH EVENING
     Dates: start: 20070101
  3. HUMULIN 70/30 [Suspect]
     Dates: end: 20060101
  4. HUMULIN R [Suspect]
     Indication: DIABETES MELLITUS
     Dates: end: 20060101
  5. HUMULIN U [Suspect]
     Indication: DIABETES MELLITUS
     Dates: end: 20060101
  6. NOVOLIN 70/30 [Concomitant]
     Dates: start: 20060101, end: 20070101

REACTIONS (3)
  - DRUG DISPENSING ERROR [None]
  - RENAL FAILURE CHRONIC [None]
  - RENAL TRANSPLANT [None]
